FAERS Safety Report 6610862-5 (Version None)
Quarter: 2010Q1

REPORT INFORMATION
  Report Type: 
  Country: None (occurrence: None)
  Receive Date: 20100219
  Receipt Date: 20100210
  Transmission Date: 20100710
  Serious: Yes (Other)
  Sender: FDA-Public Use
  Company Number: 502356

PATIENT
  Age: 62 Year
  Sex: Male
  Weight: 114 kg

DRUGS (10)
  1. HEPARIN SODIUM INJECTION [Suspect]
     Indication: DRUG USE FOR UNKNOWN INDICATION
     Dosage: INTRAVENOUS (NOT OTHERWISE SPECIFIED)
     Route: 042
  2. AMIODARONE HCL [Concomitant]
  3. (FUROSEMIDE) [Concomitant]
  4. REGULAR INSULIN [Concomitant]
  5. LIPITOR [Concomitant]
  6. (MIRINONE) [Concomitant]
  7. (NOTROGLYCERIN) [Concomitant]
  8. RANITIDINE [Concomitant]
  9. VANCOMYCIN HYDROCHLORIDE [Concomitant]
  10. (VASOPRESSIN) [Concomitant]

REACTIONS (5)
  - ATRIAL FIBRILLATION [None]
  - CARDIAC ARREST [None]
  - HEPARIN-INDUCED THROMBOCYTOPENIA [None]
  - PLATELET COUNT DECREASED [None]
  - VENTRICULAR FIBRILLATION [None]
